FAERS Safety Report 14700616 (Version 1)
Quarter: 2018Q1

REPORT INFORMATION
  Report Type: Spontaneous
  Country: GB (occurrence: GB)
  Receive Date: 20180330
  Receipt Date: 20180330
  Transmission Date: 20180509
  Serious: Yes (Hospitalization, Other)
  Sender: FDA-Public Use
  Company Number: GB-DRREDDYS-USA/UKI/18/0097109

PATIENT
  Age: 50 Year
  Sex: Female

DRUGS (5)
  1. CARBOPLATIN. [Suspect]
     Active Substance: CARBOPLATIN
     Indication: BREAST CANCER RECURRENT
     Dosage: DOSE REDUCED
     Route: 065
  2. DEXAMETHASONE. [Concomitant]
     Active Substance: DEXAMETHASONE
     Indication: BREAST CANCER RECURRENT
     Dosage: CHEMOTHERAPY REGIME
     Route: 065
  3. GEMCITABINE [Suspect]
     Active Substance: GEMCITABINE\GEMCITABINE HYDROCHLORIDE
     Dosage: PALLIATIVE CHEMOTHERAPY EIGHT DAYS PREVIOUSLY
     Route: 065
  4. CARBOPLATIN. [Suspect]
     Active Substance: CARBOPLATIN
     Dosage: PALLIATIVE CHEMOTHERAPY EIGHT DAYS PREVIOUSLY
  5. GEMCITABINE [Suspect]
     Active Substance: GEMCITABINE\GEMCITABINE HYDROCHLORIDE
     Indication: BREAST CANCER RECURRENT
     Dosage: DOSE REDUCED
     Route: 065

REACTIONS (6)
  - Thrombocytopenia [Unknown]
  - Epistaxis [Unknown]
  - Pancytopenia [Unknown]
  - Necrotising scleritis [Recovering/Resolving]
  - Drug intolerance [Recovering/Resolving]
  - Conjunctival haemorrhage [Recovered/Resolved]
